FAERS Safety Report 5114150-8 (Version None)
Quarter: 2006Q3

REPORT INFORMATION
  Report Type: 
  Country: None (occurrence: None)
  Receive Date: 20060925
  Receipt Date: 20060920
  Transmission Date: 20061208
  Serious: Yes (Hospitalization)
  Sender: FDA-Public Use
  Company Number: US-BRISTOL-MYERS SQUIBB COMPANY-13515143

PATIENT
  Age: 64 Year
  Sex: Female
  Weight: 91 kg

DRUGS (6)
  1. ERBITUX [Suspect]
     Indication: COLON CANCER
     Route: 042
     Dates: start: 20060808, end: 20060808
  2. FLUOROURACIL [Suspect]
     Indication: COLON CANCER
     Route: 042
     Dates: start: 20060829, end: 20060831
  3. LEUCOVORIN CALCIUM [Suspect]
     Indication: COLON CANCER
     Route: 042
     Dates: start: 20060829, end: 20060829
  4. ELOXATIN [Suspect]
     Route: 042
     Dates: start: 20060829, end: 20060829
  5. FUROSEMIDE [Concomitant]
  6. NOVOLIN 70/30 [Concomitant]

REACTIONS (1)
  - SYNCOPE [None]
